APPROVED DRUG PRODUCT: M-ZOLE 3 COMBINATION PACK
Active Ingredient: MICONAZOLE NITRATE
Strength: 2%,200MG
Dosage Form/Route: CREAM, SUPPOSITORY;TOPICAL, VAGINAL
Application: A074926 | Product #001
Applicant: COSETTE PHARMACEUTICALS INC
Approved: Apr 16, 1999 | RLD: No | RS: No | Type: OTC